FAERS Safety Report 10332979 (Version 1)
Quarter: 2014Q3

REPORT INFORMATION
  Report Type: Spontaneous
  Country: US (occurrence: US)
  Receive Date: 20140722
  Receipt Date: 20140722
  Transmission Date: 20150326
  Serious: Yes (Hospitalization, Other)
  Sender: FDA-Public Use
  Company Number: US-ROXANE LABORATORIES, INC.-2014-RO-01094RO

PATIENT
  Age: 57 Year
  Sex: Female

DRUGS (4)
  1. CITALOPRAM [Suspect]
     Active Substance: CITALOPRAM HYDROBROMIDE
     Indication: DEPRESSION
     Dosage: 60 MG
     Route: 065
  2. MIRTAZAPINE. [Suspect]
     Active Substance: MIRTAZAPINE
     Indication: DEPRESSION
     Dosage: 15 MG
     Route: 065
  3. BUPRENORPHINE HYDROCHLORIDE. [Suspect]
     Active Substance: BUPRENORPHINE HYDROCHLORIDE
     Indication: DRUG DEPENDENCE
     Dosage: 24 MG
     Route: 065
  4. BUPROPION [Suspect]
     Active Substance: BUPROPION
     Indication: DEPRESSION
     Dosage: 400 MG
     Route: 065

REACTIONS (5)
  - Haemodynamic instability [Recovered/Resolved]
  - Cerebral ischaemia [Recovered/Resolved with Sequelae]
  - Ischaemic cerebral infarction [Recovered/Resolved with Sequelae]
  - Cerebral vasoconstriction [Recovered/Resolved]
  - Serotonin syndrome [Recovered/Resolved]
